FAERS Safety Report 8937669 (Version 3)
Quarter: 2014Q2

REPORT INFORMATION
  Report Type: Spontaneous
  Country: US (occurrence: US)
  Receive Date: 20121130
  Receipt Date: 20131018
  Transmission Date: 20141212
  Serious: Yes (Other)
  Sender: FDA-Public Use
  Company Number: US-PFIZER INC-2012301471

PATIENT
  Age: 56 Year
  Sex: Female
  Weight: 113.38 kg

DRUGS (2)
  1. DILANTIN [Suspect]
     Indication: EPILEPSY
     Dosage: 100 MG
     Route: 048
  2. PRIMIDONE [Concomitant]
     Indication: CONVULSION
     Dosage: 250 MG, 3X/DAY

REACTIONS (1)
  - Cataract [Unknown]
